FAERS Safety Report 13667747 (Version 1)
Quarter: 2017Q2

REPORT INFORMATION
  Report Type: Spontaneous
  Country: US (occurrence: US)
  Receive Date: 20170620
  Receipt Date: 20170620
  Transmission Date: 20170830
  Serious: Yes (Death, Other)
  Sender: FDA-Public Use
  Company Number: US-SUN PHARMACEUTICAL INDUSTRIES LTD-2017US-143406

PATIENT
  Sex: Male

DRUGS (4)
  1. ZOSYN [Suspect]
     Active Substance: PIPERACILLIN SODIUM\TAZOBACTAM SODIUM
     Indication: SERRATIA INFECTION
     Dosage: UNK
     Route: 065
     Dates: start: 2017
  2. BACTRIM [Suspect]
     Active Substance: SULFAMETHOXAZOLE\TRIMETHOPRIM
     Indication: SERRATIA INFECTION
     Dosage: UNK
     Route: 065
     Dates: start: 2017
  3. ENTAPENAM (ERTAPENEM) [Suspect]
     Active Substance: ERTAPENEM
     Indication: SERRATIA INFECTION
     Dosage: UNK
     Route: 065
     Dates: start: 2017
  4. CIPROFLOXACIN. [Suspect]
     Active Substance: CIPROFLOXACIN
     Indication: SERRATIA INFECTION
     Dosage: UNK
     Route: 065
     Dates: start: 2017

REACTIONS (2)
  - Pseudomonas infection [Unknown]
  - Product use in unapproved indication [Recovered/Resolved]

NARRATIVE: CASE EVENT DATE: 2017
